FAERS Safety Report 18213199 (Version 1)
Quarter: 2020Q3

REPORT INFORMATION
  Report Type: Report from Study
  Country: TR (occurrence: TR)
  Receive Date: 20200831
  Receipt Date: 20200831
  Transmission Date: 20201103
  Serious: Yes (Other)
  Sender: FDA-Public Use
  Company Number: TR-JNJFOC-20200829438

PATIENT

DRUGS (1)
  1. CONCERTA [Suspect]
     Active Substance: METHYLPHENIDATE HYDROCHLORIDE
     Indication: ATTENTION DEFICIT HYPERACTIVITY DISORDER
     Dosage: INITIAL DOSE WAS 0.5?0.75 MG/KG/DAY.
     Route: 048

REACTIONS (4)
  - Electrocardiogram QT prolonged [Unknown]
  - Palpitations [Unknown]
  - Sinus tachycardia [Unknown]
  - Blood pressure increased [Unknown]
